FAERS Safety Report 8184472-5 (Version None)
Quarter: 2012Q1

REPORT INFORMATION
  Report Type: 
  Country: None (occurrence: None)
  Receive Date: 20120301
  Receipt Date: 20120214
  Transmission Date: 20120608
  Serious: Yes (Hospitalization)
  Sender: FDA-Public Use
  Company Number: JPI-P-019942

PATIENT
  Age: 40 Year
  Sex: Female

DRUGS (1)
  1. XYREM [Suspect]
     Indication: NARCOLEPSY
     Dosage: 4 GM (2 GM, 2 IN 1 D),ORAL, ORAL, 9 GM (4.5 AM.2 IN 1 D).ORAL
     Route: 048
     Dates: start: 20090317, end: 20120201

REACTIONS (1)
  - FOREIGN BODY ASPIRATION [None]
